FAERS Safety Report 8082743-4 (Version None)
Quarter: 2012Q1

REPORT INFORMATION
  Report Type: 
  Country: None (occurrence: None)
  Receive Date: 20120127
  Receipt Date: 20110209
  Transmission Date: 20120608
  Serious: No
  Sender: FDA-Public Use
  Company Number: US-ABBOTT-11P-163-0703829-00

PATIENT
  Sex: Female

DRUGS (5)
  1. METFFORMIN HYDROCHLORIDE [Concomitant]
     Indication: BLOOD GLUCOSE DECREASED
  2. LIPITOR [Concomitant]
     Indication: PRODUCT USED FOR UNKNOWN INDICATION
  3. SYNTHROID [Concomitant]
     Indication: PRODUCT USED FOR UNKNOWN INDICATION
  4. NEXIUM [Concomitant]
     Indication: PRODUCT USED FOR UNKNOWN INDICATION
  5. HUMIRA [Suspect]
     Indication: PSORIASIS
     Dates: start: 20110207

REACTIONS (4)
  - PSORIASIS [None]
  - INJECTION SITE URTICARIA [None]
  - POOR QUALITY SLEEP [None]
  - INJECTION SITE PARAESTHESIA [None]
